FAERS Safety Report 24151985 (Version 2)
Quarter: 2024Q3

REPORT INFORMATION
  Report Type: Spontaneous
  Country: US (occurrence: US)
  Receive Date: 20240730
  Receipt Date: 20240806
  Transmission Date: 20241016
  Serious: No
  Sender: ROCHE
  Company Number: US-ROCHE-2796709

PATIENT
  Age: 57 Year
  Sex: Female
  Weight: 54.07 kg

DRUGS (1)
  1. ACTEMRA [Suspect]
     Active Substance: TOCILIZUMAB
     Indication: Takayasu^s arteritis
     Route: 058
     Dates: start: 20210315

REACTIONS (4)
  - Off label use [Unknown]
  - No adverse event [Unknown]
  - Product complaint [Unknown]
  - Product dose omission issue [Unknown]
